FAERS Safety Report 25474521 (Version 1)
Quarter: 2025Q2

REPORT INFORMATION
  Report Type: Spontaneous
  Country: US (occurrence: None)
  Receive Date: 20250623
  Receipt Date: 20250623
  Transmission Date: 20250717
  Serious: Yes (Hospitalization)
  Sender: FDA-CTU
  Company Number: None

PATIENT
  Sex: Female

DRUGS (2)
  1. TADALAFIL [Suspect]
     Active Substance: TADALAFIL
     Indication: Pulmonary arterial hypertension
     Dosage: 40 MG DAILY ORAL ?
     Route: 048
     Dates: start: 20220720
  2. REMODULIN [Suspect]
     Active Substance: TREPROSTINIL

REACTIONS (4)
  - Hypoxia [None]
  - Unresponsive to stimuli [None]
  - Acute respiratory distress syndrome [None]
  - SARS-CoV-2 test positive [None]
